FAERS Safety Report 9386794 (Version 1)
Quarter: 2013Q3

REPORT INFORMATION
  Report Type: Spontaneous
  Country: ES (occurrence: ES)
  Receive Date: 20130708
  Receipt Date: 20130708
  Transmission Date: 20140515
  Serious: Yes (Other)
  Sender: FDA-Public Use
  Company Number: ES-009507513-1307ESP002358

PATIENT
  Age: 62 Year
  Sex: Male
  Weight: 80 kg

DRUGS (1)
  1. ONCOTICE [Suspect]
     Indication: BLADDER CANCER
     Route: 065
     Dates: start: 20130408, end: 20130408

REACTIONS (1)
  - Septic shock [Recovering/Resolving]
